FAERS Safety Report 10158100 (Version 5)
Quarter: 2014Q3

REPORT INFORMATION
  Report Type: Spontaneous
  Country: US (occurrence: US)
  Receive Date: 20140507
  Receipt Date: 20140710
  Transmission Date: 20150326
  Serious: Yes (Other)
  Sender: FDA-Public Use
  Company Number: US-BAYER-2014-063680

PATIENT
  Age: 66 Year
  Sex: Male
  Weight: 77 kg

DRUGS (9)
  1. AVODART [Concomitant]
     Active Substance: DUTASTERIDE
  2. FENOFIBRATE. [Concomitant]
     Active Substance: FENOFIBRATE
  3. ALEVE [Suspect]
     Active Substance: NAPROXEN SODIUM
     Indication: BACK PAIN
     Dosage: 1 DF, PRN
     Route: 048
     Dates: start: 20140428, end: 20140428
  4. PRAVASTATIN [Concomitant]
     Active Substance: PRAVASTATIN\PRAVASTATIN SODIUM
  5. METOPROLOL [Concomitant]
     Active Substance: METOPROLOL
  6. TAMSULOSIN [Concomitant]
     Active Substance: TAMSULOSIN
  7. ALLOPURINOL. [Concomitant]
     Active Substance: ALLOPURINOL
  8. RANITIDINE [Concomitant]
     Active Substance: RANITIDINE\RANITIDINE HYDROCHLORIDE
  9. ALEVE [Suspect]
     Active Substance: NAPROXEN SODIUM
     Indication: BACK PAIN
     Dosage: 1 DF, PRN
     Route: 048
     Dates: start: 20140421, end: 20140421

REACTIONS (5)
  - Epistaxis [Recovered/Resolved]
  - Presyncope [Recovered/Resolved]
  - Dizziness [Recovered/Resolved]
  - Epistaxis [Recovered/Resolved]
  - Epistaxis [Recovered/Resolved]

NARRATIVE: CASE EVENT DATE: 20140422
